FAERS Safety Report 12572296 (Version 2)
Quarter: 2016Q3

REPORT INFORMATION
  Report Type: Report from Study
  Country: US (occurrence: US)
  Receive Date: 20160719
  Receipt Date: 20160803
  Transmission Date: 20161109
  Serious: Yes (Hospitalization)
  Sender: FDA-Public Use
  Company Number: US-EXELIXIS-XL18416006679

PATIENT
  Age: 81 Year
  Sex: Male
  Weight: 65.53 kg

DRUGS (10)
  1. BUMETANIDE. [Concomitant]
     Active Substance: BUMETANIDE
  2. OXYGEN. [Concomitant]
     Active Substance: OXYGEN
     Dosage: 2 L/MINUTE AT NIGHT
  3. XL184 [Suspect]
     Active Substance: CABOZANTINIB
     Indication: RENAL CELL CARCINOMA
     Dosage: 60 MG, QD
     Route: 048
     Dates: start: 20140508, end: 20160708
  4. MAGNESIUM OXIDE. [Concomitant]
     Active Substance: MAGNESIUM OXIDE
  5. LISINOPRIL. [Concomitant]
     Active Substance: LISINOPRIL
  6. NORVASC [Concomitant]
     Active Substance: AMLODIPINE BESYLATE
  7. ELIQUIS [Concomitant]
     Active Substance: APIXABAN
  8. ALBUTEROL. [Concomitant]
     Active Substance: ALBUTEROL
  9. CARDURA [Concomitant]
     Active Substance: DOXAZOSIN MESYLATE
  10. LEVOTHYROXINE. [Concomitant]
     Active Substance: LEVOTHYROXINE

REACTIONS (3)
  - Dyspnoea [Recovering/Resolving]
  - Oedema peripheral [Recovered/Resolved]
  - Pulmonary hypertension [Recovering/Resolving]

NARRATIVE: CASE EVENT DATE: 20160702
